FAERS Safety Report 5526807-5 (Version None)
Quarter: 2007Q4

REPORT INFORMATION
  Report Type: 
  Country: None (occurrence: None)
  Receive Date: 20071127
  Receipt Date: 20071122
  Transmission Date: 20080405
  Serious: Yes (Other)
  Sender: FDA-Public Use
  Company Number: GB-WYE-G00667807

PATIENT
  Age: 43 Year
  Sex: Male
  Weight: 95 kg

DRUGS (8)
  1. RAPAMUNE [Suspect]
     Route: 048
     Dates: start: 20071004, end: 20071102
  2. RAPAMUNE [Suspect]
     Route: 048
     Dates: start: 20070501, end: 20070601
  3. AZATHIOPRINE [Concomitant]
     Route: 048
     Dates: start: 20070601, end: 20070701
  4. SPIRONOLACTONE [Concomitant]
     Dosage: 100MG, FREQUENCY UNKNOWN
     Route: 048
     Dates: start: 20070501
  5. CITALOPRAM [Concomitant]
     Dosage: 40MG, FREQUENCY UNKNOWN
     Route: 048
     Dates: start: 20070201
  6. OLANZAPINE [Concomitant]
     Dosage: 5MG, FREQUENCY UNKNOWN
     Route: 048
     Dates: start: 20070201
  7. AMLODIPINE [Concomitant]
     Dosage: 5 MG, FREQUENCY UNKNOWN
  8. CYCLOSPORINE [Concomitant]
     Route: 048
     Dates: start: 20051201

REACTIONS (1)
  - BONE MARROW FAILURE [None]
